FAERS Safety Report 23874706 (Version 1)
Quarter: 2024Q2

REPORT INFORMATION
  Report Type: Spontaneous
  Country: US (occurrence: US)
  Receive Date: 20240520
  Receipt Date: 20240520
  Transmission Date: 20240716
  Serious: No
  Sender: FDA-Public Use
  Company Number: US-CIPLA LTD.-2024US00318

PATIENT

DRUGS (1)
  1. ALBUTEROL [Suspect]
     Active Substance: ALBUTEROL
     Indication: Dyspnoea
     Dosage: UNK UNK, PRN (2 PUFFS VIA MOUTH 4 TIMES DAILY AS NEEDED)
     Route: 048

REACTIONS (4)
  - Illness [Not Recovered/Not Resolved]
  - Device delivery system issue [Unknown]
  - Product tampering [Unknown]
  - Upper respiratory tract infection [Not Recovered/Not Resolved]
